FAERS Safety Report 6831236-8 (Version None)
Quarter: 2010Q3

REPORT INFORMATION
  Report Type: 
  Country: None (occurrence: None)
  Receive Date: 20100712
  Receipt Date: 20100701
  Transmission Date: 20110219
  Serious: Yes (Hospitalization)
  Sender: FDA-Public Use
  Company Number: US-JNJFOC-20100503278

PATIENT
  Sex: Male
  Weight: 60 kg

DRUGS (3)
  1. INFLIXIMAB [Suspect]
     Indication: COLITIS ULCERATIVE
     Route: 042
  2. INFLIXIMAB [Suspect]
     Route: 042
  3. PERCOCET [Concomitant]
     Indication: PAIN

REACTIONS (4)
  - COLECTOMY TOTAL [None]
  - ILEOSTOMY [None]
  - ILEOSTOMY CLOSURE [None]
  - PELVIC ABSCESS [None]
